FAERS Safety Report 20496447 (Version 1)
Quarter: 2022Q1

REPORT INFORMATION
  Report Type: Report from Study
  Country: US (occurrence: US)
  Receive Date: 20220221
  Receipt Date: 20220221
  Transmission Date: 20220424
  Serious: Yes (Hospitalization)
  Sender: FDA-Public Use
  Company Number: US-BIOVITRUM-2022US02276

PATIENT
  Sex: Female

DRUGS (3)
  1. SYNAGIS [Interacting]
     Active Substance: PALIVIZUMAB
     Indication: Antiviral prophylaxis
     Dosage: 100MG PER 1ML
     Route: 030
  2. ASPIRIN [Concomitant]
     Active Substance: ASPIRIN
     Indication: Product used for unknown indication
     Route: 065
  3. DIGOXIN PEDIATRIC [Concomitant]
     Indication: Product used for unknown indication
     Route: 065

REACTIONS (1)
  - Superior vena cava syndrome [Not Recovered/Not Resolved]
